FAERS Safety Report 7505295-3 (Version None)
Quarter: 2011Q2

REPORT INFORMATION
  Report Type: 
  Country: None (occurrence: None)
  Receive Date: 20110420
  Receipt Date: 20110224
  Transmission Date: 20111010
  Serious: Yes (Hospitalization)
  Sender: FDA-Public Use
  Company Number: SPV1-2010-00226

PATIENT
  Age: 21 Year
  Sex: Female
  Weight: 99.8 kg

DRUGS (1)
  1. LIALDA [Suspect]
     Indication: PROCTITIS ULCERATIVE
     Dosage: 3.6 G, 1X/DAY: QD, ORAL
     Route: 048
     Dates: start: 20100115, end: 20100123

REACTIONS (1)
  - PANCREATITIS [None]
